FAERS Safety Report 25384951 (Version 1)
Quarter: 2025Q2

REPORT INFORMATION
  Report Type: Spontaneous
  Country: FR (occurrence: FR)
  Receive Date: 20250602
  Receipt Date: 20250602
  Transmission Date: 20250716
  Serious: Yes (Death, Hospitalization)
  Sender: MYLAN
  Company Number: FR-MYLANLABS-2025M1044706

PATIENT
  Age: 46 Year
  Sex: Female

DRUGS (4)
  1. DEXAMETHASONE [Suspect]
     Active Substance: DEXAMETHASONE
     Indication: Plasma cell leukaemia
  2. IVERMECTIN [Suspect]
     Active Substance: IVERMECTIN
     Indication: Parasitic infection prophylaxis
  3. IVERMECTIN [Suspect]
     Active Substance: IVERMECTIN
     Indication: Strongyloidiasis
  4. IVERMECTIN [Suspect]
     Active Substance: IVERMECTIN
     Indication: Strongyloidiasis

REACTIONS (10)
  - Strongyloidiasis [Fatal]
  - Clostridium difficile colitis [Fatal]
  - Candida infection [Fatal]
  - Fungaemia [Fatal]
  - Pneumocystis jirovecii pneumonia [Fatal]
  - Cytomegalovirus infection reactivation [Fatal]
  - Escherichia bacteraemia [Fatal]
  - Oedema [Fatal]
  - Cerebral haemorrhage [Fatal]
  - Drug ineffective [Fatal]
